FAERS Safety Report 7982621-2 (Version None)
Quarter: 2011Q4

REPORT INFORMATION
  Report Type: 
  Country: None (occurrence: None)
  Receive Date: 20111215
  Receipt Date: 20111207
  Transmission Date: 20120403
  Serious: Yes (Death)
  Sender: FDA-Public Use
  Company Number: GB-GLAXOSMITHKLINE-B0767657A

PATIENT
  Age: 64 Year
  Sex: Female

DRUGS (3)
  1. ZEBINIX [Suspect]
     Indication: PRODUCT USED FOR UNKNOWN INDICATION
     Dosage: 800MG AT NIGHT
     Route: 065
  2. TROBALT [Suspect]
     Indication: EPILEPSY
     Route: 048
     Dates: start: 20111107
  3. LAMICTAL [Suspect]
     Indication: EPILEPSY
     Dosage: 450MG PER DAY
     Route: 048

REACTIONS (3)
  - DEATH [None]
  - DRUG DOSE OMISSION [None]
  - TREATMENT NONCOMPLIANCE [None]
